FAERS Safety Report 9140930 (Version 2)
Quarter: 2013Q2

REPORT INFORMATION
  Report Type: Report from Study
  Country: ES (occurrence: ES)
  Receive Date: 20130305
  Receipt Date: 20130606
  Transmission Date: 20140414
  Serious: Yes (Death, Other)
  Sender: FDA-Public Use
  Company Number: ES-VERTEX PHARMACEUTICALS INC.-2013-003003

PATIENT
  Sex: 0

DRUGS (3)
  1. INCIVO [Suspect]
     Indication: HEPATITIS C
     Route: 048
  2. PEG-INTERFERON [Suspect]
     Indication: HEPATITIS C
     Dosage: DOSAGE FORM: UNKNOWN
     Route: 065
  3. RIBAVIRIN [Suspect]
     Indication: HEPATITIS C
     Dosage: DOSAGE FORM: UNKNOWN
     Route: 065

REACTIONS (11)
  - Death [Fatal]
  - Drug intolerance [Unknown]
  - Toxicity to various agents [Unknown]
  - Infection [Unknown]
  - Rash [Unknown]
  - Anaemia [Unknown]
  - Thrombocytopenia [Unknown]
  - Condition aggravated [Unknown]
  - Off label use [Unknown]
  - Anorectal discomfort [Unknown]
  - Pruritus [Unknown]
